FAERS Safety Report 8315624-9 (Version None)
Quarter: 2012Q2

REPORT INFORMATION
  Report Type: 
  Country: None (occurrence: None)
  Receive Date: 20120426
  Receipt Date: 20120412
  Transmission Date: 20120825
  Serious: Yes (Hospitalization)
  Sender: FDA-Public Use
  Company Number: DE-ROCHE-771060

PATIENT
  Sex: Male
  Weight: 75 kg

DRUGS (4)
  1. OLMESARTAN MEDOXOMIL [Concomitant]
     Indication: PRODUCT USED FOR UNKNOWN INDICATION
     Dosage: 20 MG, UNK
  2. FLUVASTATIN SODIUM [Concomitant]
     Indication: PRODUCT USED FOR UNKNOWN INDICATION
     Dosage: 40 MG, UNK
  3. VISMODEGIB AND VISMODEGIB [Suspect]
     Indication: BASAL CELL CARCINOMA
     Dosage: 150 MG, QD
     Route: 048
     Dates: start: 20090813, end: 20091008
  4. VISMODEGIB AND VISMODEGIB [Suspect]
     Dosage: 150 MG, QD
     Route: 048

REACTIONS (1)
  - PULMONARY EMBOLISM [None]
